FAERS Safety Report 5604776-7 (Version None)
Quarter: 2008Q1

REPORT INFORMATION
  Report Type: 
  Country: None (occurrence: None)
  Receive Date: 20080128
  Receipt Date: 20080116
  Transmission Date: 20080703
  Serious: Yes (Death, Hospitalization)
  Sender: FDA-Public Use
  Company Number: US-ROCHE-540697

PATIENT
  Age: 48 Year
  Sex: Female
  Weight: 59.5 kg

DRUGS (4)
  1. CAPECITABINE [Suspect]
     Dosage: GIVEN TWICE DAILY ON DAYS ONE TO FOURTEEN EVERY 21 DAYS.
     Route: 048
     Dates: start: 20071212, end: 20071201
  2. LY317615 [Suspect]
     Dosage: LOADING DOSE. BLINDED ENZASTAURIN.
     Route: 048
     Dates: start: 20071212, end: 20071212
  3. LY317615 [Suspect]
     Dosage: BLINDED ENZASTAURIN.
     Route: 048
     Dates: start: 20071213
  4. RANITIDINE [Concomitant]
     Dates: end: 20071212

REACTIONS (1)
  - PNEUMONIA [None]
